FAERS Safety Report 23310491 (Version 1)
Quarter: 2023Q4

REPORT INFORMATION
  Report Type: Spontaneous
  Country: US (occurrence: US)
  Receive Date: 20231218
  Receipt Date: 20231218
  Transmission Date: 20240110
  Serious: No
  Sender: FDA-Public Use
  Company Number: US-HLS-202300155

PATIENT
  Sex: Male

DRUGS (3)
  1. CLOZAPINE [Suspect]
     Active Substance: CLOZAPINE
     Indication: Schizophrenia
     Route: 065
  2. SEROQUEL [Concomitant]
     Active Substance: QUETIAPINE FUMARATE
     Indication: Schizophrenia
     Route: 065
  3. RISPERDAL [Concomitant]
     Active Substance: RISPERIDONE
     Indication: Schizophrenia
     Route: 065

REACTIONS (1)
  - Drug ineffective [Unknown]
